FAERS Safety Report 6026450-8 (Version None)
Quarter: 2009Q1

REPORT INFORMATION
  Report Type: 
  Country: None (occurrence: None)
  Receive Date: 20090102
  Receipt Date: 20081219
  Transmission Date: 20090719
  Serious: Yes (Disabling, Other)
  Sender: FDA-Public Use
  Company Number: US-PFIZER INC-2005103347

PATIENT
  Sex: Female

DRUGS (1)
  1. XANAX [Suspect]
     Indication: PANIC DISORDER WITH AGORAPHOBIA
     Route: 065

REACTIONS (7)
  - DISABILITY [None]
  - DRUG HYPERSENSITIVITY [None]
  - ILL-DEFINED DISORDER [None]
  - PANIC REACTION [None]
  - ROAD TRAFFIC ACCIDENT [None]
  - RUPTURED CEREBRAL ANEURYSM [None]
  - SKIN EXFOLIATION [None]
